FAERS Safety Report 16272491 (Version 1)
Quarter: 2019Q2

REPORT INFORMATION
  Report Type: Spontaneous
  Country: US (occurrence: US)
  Receive Date: 20190506
  Receipt Date: 20190506
  Transmission Date: 20190711
  Serious: No
  Sender: FDA-Public Use
  Company Number: US-CIPLA LTD.-2019US01284

PATIENT

DRUGS (3)
  1. TOPIRAMATE. [Suspect]
     Active Substance: TOPIRAMATE
     Indication: MIGRAINE
     Dosage: UNK
     Route: 065
     Dates: start: 201806
  2. TAMOXIFEN [Concomitant]
     Active Substance: TAMOXIFEN
     Indication: PROPHYLAXIS
     Dosage: 20 MILLIGRAM, QD (ONCE IN THE EVENING EVERY DAY)
     Route: 065
  3. TOPIRAMATE. [Suspect]
     Active Substance: TOPIRAMATE
     Dosage: 100 MILLIGRAM, QD (ONE TABLET ONCE IN THE EVENING)
     Route: 048

REACTIONS (3)
  - Cold sweat [Unknown]
  - Skin warm [Unknown]
  - Hypohidrosis [Not Recovered/Not Resolved]
